FAERS Safety Report 7430722-X (Version None)
Quarter: 2011Q2

REPORT INFORMATION
  Report Type: 
  Country: None (occurrence: None)
  Receive Date: 20110421
  Receipt Date: 20110418
  Transmission Date: 20111010
  Serious: No
  Sender: FDA-Public Use
  Company Number: US-B.I. PHARMACEUTICALS,INC./RIDGEFIELD-2011-BP-05543BP

PATIENT
  Age: 82 Year
  Sex: Male

DRUGS (4)
  1. PRILOSEC [Concomitant]
  2. OXYGEN [Concomitant]
  3. ADVAIR HFA [Concomitant]
  4. PRADAXA [Suspect]

REACTIONS (5)
  - GASTROOESOPHAGEAL REFLUX DISEASE [None]
  - VOMITING [None]
  - HEADACHE [None]
  - HAEMATURIA [None]
  - NAUSEA [None]
